FAERS Safety Report 15839835 (Version 3)
Quarter: 2019Q3

REPORT INFORMATION
  Report Type: Report from Study
  Country: US (occurrence: US)
  Receive Date: 20190117
  Receipt Date: 20190724
  Transmission Date: 20191004
  Serious: Yes (Hospitalization)
  Sender: FDA-Public Use
  Company Number: US-ACTELION-A-US2019-184661

PATIENT
  Age: 17 Year
  Sex: Female

DRUGS (1)
  1. OPSUMIT [Suspect]
     Active Substance: MACITENTAN
     Indication: PULMONARY ARTERIAL HYPERTENSION
     Dosage: 10 MG, UNK
     Route: 048
     Dates: start: 20181213

REACTIONS (7)
  - Haemorrhage [Unknown]
  - Haematocrit decreased [Unknown]
  - Vascular device infection [Unknown]
  - Presyncope [Unknown]
  - Pyrexia [Unknown]
  - Mental disorder [Unknown]
  - Haemoglobin decreased [Unknown]
